FAERS Safety Report 25824853 (Version 1)
Quarter: 2025Q3

REPORT INFORMATION
  Report Type: Spontaneous
  Country: US (occurrence: None)
  Receive Date: 20250919
  Receipt Date: 20250919
  Transmission Date: 20251020
  Serious: No
  Sender: FDA-CTU
  Company Number: None

PATIENT
  Sex: Female

DRUGS (1)
  1. NORDITROPIN [Suspect]
     Active Substance: SOMATROPIN
     Indication: Small for dates baby
     Dosage: OTHER QUANTITY : 0.275MG;?FREQUENCY : DAILY;?
     Route: 058
     Dates: start: 20250623

REACTIONS (3)
  - Hypersensitivity [None]
  - Exposure during pregnancy [None]
  - Maternal drugs affecting foetus [None]
